FAERS Safety Report 8443991-4 (Version None)
Quarter: 2012Q2

REPORT INFORMATION
  Report Type: 
  Country: None (occurrence: None)
  Receive Date: 20120618
  Receipt Date: 20120611
  Transmission Date: 20120825
  Serious: Yes (Life-Threatening, Other)
  Sender: FDA-Public Use
  Company Number: PHHY2012NL050131

PATIENT
  Sex: Male

DRUGS (2)
  1. CLOZAPINE [Suspect]
     Dosage: UNK UKN, UNK
  2. CLOZAPINE [Suspect]
     Dosage: UNK UL, UNK

REACTIONS (2)
  - INTESTINAL PERFORATION [None]
  - ILEUS [None]
